FAERS Safety Report 11020905 (Version 7)
Quarter: 2020Q4

REPORT INFORMATION
  Report Type: Spontaneous
  Country: US (occurrence: US)
  Receive Date: 20150413
  Receipt Date: 20201023
  Transmission Date: 20210113
  Serious: Yes (Other)
  Sender: FDA-Public Use
  Company Number: US-JNJFOC-20150404200

PATIENT
  Sex: Male
  Weight: 133.93 kg

DRUGS (3)
  1. RISPERDAL [Suspect]
     Active Substance: RISPERIDONE
     Indication: PSYCHOTIC DISORDER
     Dosage: 3 MG ONCE DAILY,10 MG
     Route: 048
     Dates: start: 2009
  2. RISPERDAL [Suspect]
     Active Substance: RISPERIDONE
     Indication: SCHIZOPHRENIA
     Dosage: 2 MG,  4 MG.
     Route: 048
     Dates: start: 2011, end: 2012
  3. RISPERIDONE. [Suspect]
     Active Substance: RISPERIDONE
     Indication: SCHIZOPHRENIA
     Dosage: THERAPY CONTINUES
     Route: 065
     Dates: start: 2012

REACTIONS (5)
  - Blood cholesterol increased [Unknown]
  - Breast disorder male [Not Recovered/Not Resolved]
  - Abnormal weight gain [Unknown]
  - Diabetes mellitus [Unknown]
  - Hypertension [Unknown]

NARRATIVE: CASE EVENT DATE: 2010
